FAERS Safety Report 26208417 (Version 1)
Quarter: 2025Q4

REPORT INFORMATION
  Report Type: Spontaneous
  Country: US (occurrence: None)
  Receive Date: 20251226
  Receipt Date: 20251226
  Transmission Date: 20260117
  Serious: Yes (Hospitalization)
  Sender: FDA-CTU
  Company Number: None

PATIENT
  Age: 3 Year
  Sex: Male
  Weight: 15.7 kg

DRUGS (4)
  1. CYCLOPHOSPHAMIDE [Suspect]
     Active Substance: CYCLOPHOSPHAMIDE
     Dates: end: 20251112
  2. MESNA [Suspect]
     Active Substance: MESNA
     Dates: end: 20251112
  3. NEULASTA [Suspect]
     Active Substance: PEGFILGRASTIM
     Dates: end: 20251126
  4. THIOTEPA [Suspect]
     Active Substance: THIOTEPA
     Dates: end: 20251109

REACTIONS (3)
  - Mucosal inflammation [None]
  - Engraftment syndrome [None]
  - Febrile neutropenia [None]

NARRATIVE: CASE EVENT DATE: 20251122
